FAERS Safety Report 4815667-3 (Version None)
Quarter: 2005Q4

REPORT INFORMATION
  Report Type: 
  Country: None (occurrence: None)
  Receive Date: 20051027
  Receipt Date: 20051027
  Transmission Date: 20060501
  Serious: Yes (Disabling)
  Sender: FDA-Public Use
  Company Number: None

PATIENT
  Age: 55 Year
  Sex: Female
  Weight: 165 kg

DRUGS (2)
  1. TYSABRI [Suspect]
     Indication: MULTIPLE SCLEROSIS
     Dosage: THERAPY DATES 2/20 OR 2/21/2005
  2. AVONEX [Suspect]
     Dosage: 33 MCG  THERAPY DATES 2/20 OR 2/21/2005

REACTIONS (5)
  - ABASIA [None]
  - BLINDNESS UNILATERAL [None]
  - CHEST PAIN [None]
  - PNEUMONIA [None]
  - URINARY TRACT INFECTION [None]
